FAERS Safety Report 6616376-0 (Version None)
Quarter: 2010Q1

REPORT INFORMATION
  Report Type: 
  Country: None (occurrence: None)
  Receive Date: 20100305
  Receipt Date: 20100225
  Transmission Date: 20100710
  Serious: Yes (Other)
  Sender: FDA-Public Use
  Company Number: US-JNJFOC-20100300103

PATIENT
  Age: 43 Year
  Sex: Female

DRUGS (3)
  1. TOPAMAX [Suspect]
     Indication: MIGRAINE PROPHYLAXIS
     Route: 065
  2. TOPAMAX [Suspect]
     Route: 065
  3. PIROXICAM [Concomitant]

REACTIONS (7)
  - ALOPECIA [None]
  - DISTURBANCE IN ATTENTION [None]
  - GASTRIC DISORDER [None]
  - GASTROOESOPHAGEAL REFLUX DISEASE [None]
  - HYPOAESTHESIA [None]
  - MUSCULOSKELETAL STIFFNESS [None]
  - PHARYNGEAL OEDEMA [None]
